FAERS Safety Report 18455114 (Version 1)
Quarter: 2020Q4

REPORT INFORMATION
  Report Type: Other
  Country: AT (occurrence: AT)
  Receive Date: 20201102
  Receipt Date: 20201102
  Transmission Date: 20210114
  Serious: Yes (Hospitalization, Disabling)
  Sender: FDA-Public Use
  Company Number: AT-INCYTE CORPORATION-2020IN010719

PATIENT

DRUGS (1)
  1. JAKAVI [Suspect]
     Active Substance: RUXOLITINIB
     Indication: PRIMARY MYELOFIBROSIS
     Dosage: 1 DF, Q12H (1-0-1)
     Route: 065

REACTIONS (1)
  - Bone marrow oedema [Unknown]

NARRATIVE: CASE EVENT DATE: 20200809
